FAERS Safety Report 26087791 (Version 2)
Quarter: 2025Q4

REPORT INFORMATION
  Report Type: Report from Study
  Country: US (occurrence: US)
  Receive Date: 20251125
  Receipt Date: 20251224
  Transmission Date: 20260118
  Serious: No
  Sender: PFIZER
  Company Number: US-PFIZER INC-PV202500136891

PATIENT
  Age: 80 Year
  Sex: Male

DRUGS (1)
  1. TALZENNA [Suspect]
     Active Substance: TALAZOPARIB TOSYLATE
     Indication: Prostate cancer
     Dosage: 0.5 MG

REACTIONS (6)
  - Constipation [Not Recovered/Not Resolved]
  - Hot flush [Unknown]
  - Middle insomnia [Unknown]
  - Fatigue [Recovering/Resolving]
  - Asthenia [Unknown]
  - Diarrhoea [Unknown]
